FAERS Safety Report 6543795-3 (Version None)
Quarter: 2010Q1

REPORT INFORMATION
  Report Type: 
  Country: None (occurrence: None)
  Receive Date: 20100119
  Receipt Date: 20100119
  Transmission Date: 20100710
  Serious: No
  Sender: FDA-Public Use
  Company Number: None

PATIENT
  Age: 47 Year
  Sex: Male
  Weight: 70.3075 kg

DRUGS (1)
  1. CIPROFLOXACIN [Suspect]
     Indication: URINARY TRACT INFECTION
     Dosage: 250MG 2X PER DAY PO
     Route: 048
     Dates: start: 20091227, end: 20091229

REACTIONS (3)
  - JOINT RANGE OF MOTION DECREASED [None]
  - MYALGIA [None]
  - TENDON PAIN [None]
